FAERS Safety Report 7249424-8 (Version None)
Quarter: 2011Q1

REPORT INFORMATION
  Report Type: 
  Country: None (occurrence: None)
  Receive Date: 20110128
  Receipt Date: 20101217
  Transmission Date: 20110831
  Serious: Yes (Other)
  Sender: FDA-Public Use
  Company Number: US-BAYER-2010-007080

PATIENT
  Sex: Female

DRUGS (2)
  1. MIRENA [Suspect]
     Indication: CONTRACEPTION
     Dosage: 20 ?G/D, CONT
     Dates: start: 20051201, end: 20101201
  2. MIRENA [Suspect]
     Indication: MENSTRUAL CYCLE MANAGEMENT

REACTIONS (2)
  - OVARIAN NEOPLASM [None]
  - PELVIC PAIN [None]
